FAERS Safety Report 16310766 (Version 1)
Quarter: 2019Q2

REPORT INFORMATION
  Report Type: Spontaneous
  Country: US (occurrence: US)
  Receive Date: 20190514
  Receipt Date: 20190514
  Transmission Date: 20190711
  Serious: Yes (Other)
  Sender: FDA-Public Use
  Company Number: US-BRAINTREE LABORATORIES-190042-3

PATIENT
  Age: 67 Year
  Sex: Female
  Weight: 63.5 kg

DRUGS (1)
  1. SUPREP BOWEL PREP [Suspect]
     Active Substance: MAGNESIUM SULFATE\POTASSIUM SULFATE\SODIUM SULFATE
     Indication: COLONOSCOPY
     Dosage: 1 X 6 OZ. BOTTLE
     Route: 048
     Dates: start: 20190120, end: 20190120

REACTIONS (8)
  - Acute kidney injury [None]
  - Vomiting [None]
  - Dehydration [None]
  - Chronic kidney disease [None]
  - Nausea [None]
  - Asthenia [None]
  - Glomerular filtration rate decreased [None]
  - Blood pressure increased [None]

NARRATIVE: CASE EVENT DATE: 20190121
